FAERS Safety Report 5426158-3 (Version None)
Quarter: 2007Q3

REPORT INFORMATION
  Report Type: 
  Country: None (occurrence: None)
  Receive Date: 20070827
  Receipt Date: 20070820
  Transmission Date: 20080115
  Serious: Yes (Hospitalization)
  Sender: FDA-Public Use
  Company Number: FR-AVENTIS-200712667FR

PATIENT
  Age: 45 Year
  Sex: Female

DRUGS (8)
  1. LASIX [Suspect]
     Route: 048
     Dates: start: 20060101, end: 20070710
  2. NORVIR [Suspect]
     Route: 048
     Dates: start: 20070214, end: 20070710
  3. BACTRIM [Suspect]
     Dosage: DOSE: 400/80
     Route: 048
     Dates: start: 20070605, end: 20070710
  4. OLMETEC [Suspect]
     Route: 048
     Dates: start: 20060101, end: 20070710
  5. REYATAZ [Concomitant]
     Route: 048
     Dates: start: 20070615
  6. KIVEXA [Concomitant]
     Route: 048
     Dates: start: 20070615, end: 20070709
  7. KIVEXA [Concomitant]
     Route: 048
     Dates: start: 20070710, end: 20070715
  8. KIVEXA [Concomitant]
     Route: 048
     Dates: start: 20070716

REACTIONS (1)
  - RENAL FAILURE ACUTE [None]
